FAERS Safety Report 13426586 (Version 1)
Quarter: 2017Q2

REPORT INFORMATION
  Report Type: Report from Study
  Country: US (occurrence: US)
  Receive Date: 20170411
  Receipt Date: 20170411
  Transmission Date: 20170830
  Serious: No
  Sender: FDA-Public Use
  Company Number: US-009507513-1703USA012805

PATIENT
  Sex: Female

DRUGS (1)
  1. NEXPLANON [Suspect]
     Active Substance: ETONOGESTREL
     Indication: CONTRACEPTION
     Dosage: 1 IMPLANT, 3 YEARS
     Route: 059
     Dates: start: 2014

REACTIONS (9)
  - Fear [Unknown]
  - Nervousness [Unknown]
  - Frustration tolerance decreased [Unknown]
  - Menstrual disorder [Unknown]
  - Feeling abnormal [Unknown]
  - Polymenorrhoea [Unknown]
  - Headache [Not Recovered/Not Resolved]
  - Mood altered [Unknown]
  - Anxiety [Unknown]
